FAERS Safety Report 7259572-4 (Version None)
Quarter: 2011Q1

REPORT INFORMATION
  Report Type: 
  Country: None (occurrence: None)
  Receive Date: 20110130
  Receipt Date: 20100921
  Transmission Date: 20110831
  Serious: No
  Sender: FDA-Public Use
  Company Number: US-ABBOTT-09P-163-0593475-00

PATIENT
  Sex: Male
  Weight: 92.162 kg

DRUGS (10)
  1. OMEPRAZOLE [Concomitant]
     Indication: PROPHYLAXIS
     Route: 048
  2. FOLIC ACID [Concomitant]
     Indication: VITAMIN SUPPLEMENTATION
     Route: 048
  3. SYNTHROID [Concomitant]
     Indication: HYPOTHYROIDISM
     Route: 048
  4. VITAMIN D [Concomitant]
     Indication: VITAMIN SUPPLEMENTATION
     Route: 048
  5. HUMIRA [Suspect]
     Route: 058
     Dates: end: 20091201
  6. HUMIRA [Suspect]
     Indication: RHEUMATOID ARTHRITIS
     Route: 058
     Dates: start: 20070217
  7. METHOTREXATE [Concomitant]
     Indication: RHEUMATOID ARTHRITIS
     Route: 048
     Dates: start: 20060801
  8. PIROXICAM [Concomitant]
     Indication: ARTHRALGIA
     Route: 048
  9. HUMIRA [Suspect]
  10. OMEPRAZOLE [Concomitant]
     Indication: ADVERSE DRUG REACTION

REACTIONS (6)
  - RESPIRATORY TRACT INFECTION [None]
  - MYALGIA [None]
  - ARTHRALGIA [None]
  - OSTEOARTHRITIS [None]
  - COUGH [None]
  - HIP ARTHROPLASTY [None]
